FAERS Safety Report 6460945-8 (Version None)
Quarter: 2009Q4

REPORT INFORMATION
  Report Type: 
  Country: None (occurrence: None)
  Receive Date: 20091130
  Receipt Date: 20091119
  Transmission Date: 20100525
  Serious: Yes (Hospitalization)
  Sender: FDA-Public Use
  Company Number: JP-ASTRAZENECA-2009SE27754

PATIENT
  Sex: Female

DRUGS (5)
  1. ARIMIDEX [Suspect]
     Indication: BREAST CANCER
     Route: 048
  2. ABILIFY [Suspect]
     Route: 048
  3. DORAL [Suspect]
     Route: 048
  4. MAGNESIUM OXIDE [Concomitant]
     Route: 048
  5. CATHARTIC AGENT [Concomitant]
     Route: 065

REACTIONS (2)
  - AKINESIA [None]
  - DIZZINESS [None]
